FAERS Safety Report 5601021-3 (Version None)
Quarter: 2008Q1

REPORT INFORMATION
  Report Type: 
  Country: None (occurrence: None)
  Receive Date: 20080104
  Receipt Date: 20070110
  Transmission Date: 20080703
  Serious: Yes (Life-Threatening)
  Sender: FDA-Public Use
  Company Number: 1022556-2007-00006

PATIENT
  Sex: Male
  Weight: 83.9154 kg

DRUGS (1)
  1. UNISOM [Suspect]
     Indication: INSOMNIA
     Dosage: 1 TAB DAILY, ORAL
     Route: 048

REACTIONS (5)
  - ARTHRALGIA [None]
  - FATIGUE [None]
  - MYALGIA [None]
  - MYOCARDIAL INFARCTION [None]
  - OFF LABEL USE [None]
